FAERS Safety Report 8021449-4 (Version None)
Quarter: 2011Q4

REPORT INFORMATION
  Report Type: 
  Country: None (occurrence: None)
  Receive Date: 20111229
  Receipt Date: 20111214
  Transmission Date: 20120403
  Serious: Yes (Hospitalization, Other)
  Sender: FDA-Public Use
  Company Number: 2011AP002632

PATIENT
  Age: 66 Year
  Sex: Female

DRUGS (5)
  1. LANSOPRAZOLE [Concomitant]
  2. MEMANTINE HCL [Suspect]
     Indication: DEMENTIA
     Dosage: 10 MG, PO, BID
     Route: 048
     Dates: end: 20111025
  3. AMLODIPINE [Suspect]
     Indication: BLOOD PRESSURE
     Dosage: 5 MG, PO, QD
     Route: 048
     Dates: end: 20111025
  4. PRAVASTATIN [Suspect]
     Indication: BLOOD CHOLESTEROL
     Dosage: 40 MG, PO, QD,
     Route: 048
     Dates: end: 20111025
  5. RAMIPRIL [Suspect]
     Indication: BLOOD PRESSURE
     Dosage: 10 MG, QD, PO
     Route: 048
     Dates: start: 20111026

REACTIONS (2)
  - COMA SCALE ABNORMAL [None]
  - PANCREATITIS ACUTE [None]
